FAERS Safety Report 20343328 (Version 1)
Quarter: 2022Q1

REPORT INFORMATION
  Report Type: Spontaneous
  Country: DE (occurrence: DE)
  Receive Date: 20220117
  Receipt Date: 20220117
  Transmission Date: 20220423
  Serious: Yes (Other)
  Sender: FDA-Public Use
  Company Number: DE-BFARM-21012158

PATIENT
  Sex: Male

DRUGS (1)
  1. CIPROFLOXACIN [Suspect]
     Active Substance: CIPROFLOXACIN
     Indication: Product used for unknown indication
     Dosage: UNK, FILM-COATED TABLET
     Route: 065

REACTIONS (2)
  - Retinal detachment [Not Recovered/Not Resolved]
  - Tendon discomfort [Not Recovered/Not Resolved]
